FAERS Safety Report 22161520 (Version 1)
Quarter: 2023Q1

REPORT INFORMATION
  Report Type: Spontaneous
  Country: GB (occurrence: GB)
  Receive Date: 20230331
  Receipt Date: 20230331
  Transmission Date: 20230417
  Serious: Yes (Hospitalization, Disabling, Other)
  Sender: FDA-Public Use
  Company Number: GB-MHRA-MED-202303272024470220-CRBJL

PATIENT
  Sex: Female

DRUGS (5)
  1. FLUCONAZOLE [Suspect]
     Active Substance: FLUCONAZOLE
     Indication: Candida infection
     Dosage: 0.25 MG, 4X/DAY
     Dates: start: 20230131, end: 20230210
  2. ALVESCO [Concomitant]
     Active Substance: CICLESONIDE
     Dosage: UNK
  3. GAVISCON ADVANCE ANISEED [Concomitant]
     Dosage: UNK
  4. LANSOPRAZOLE [Concomitant]
     Active Substance: LANSOPRAZOLE
     Dosage: UNK
  5. MONTELUKAST [Concomitant]
     Active Substance: MONTELUKAST SODIUM
     Dosage: UNK

REACTIONS (5)
  - Off label use [Unknown]
  - Product use issue [Unknown]
  - Peripheral swelling [Not Recovered/Not Resolved]
  - Swelling of eyelid [Unknown]
  - Off label use [Unknown]

NARRATIVE: CASE EVENT DATE: 20230131
